FAERS Safety Report 4405274-9 (Version None)
Quarter: 2004Q3

REPORT INFORMATION
  Report Type: 
  Country: None (occurrence: None)
  Receive Date: 20040723
  Receipt Date: 20040715
  Transmission Date: 20050211
  Serious: Yes (Other)
  Sender: FDA-Public Use
  Company Number: US-BRISTOL-MYERS SQUIBB COMPANY-12642542

PATIENT
  Age: 87 Year
  Sex: Female

DRUGS (12)
  1. TEQUIN [Suspect]
     Indication: DYSPNOEA
     Route: 042
     Dates: start: 20040712, end: 20040712
  2. TEQUIN [Suspect]
     Indication: CARDIOMYOPATHY
     Route: 042
     Dates: start: 20040712, end: 20040712
  3. GLYBURIDE [Concomitant]
  4. ALLOPURINOL [Concomitant]
  5. POTASSIUM [Concomitant]
  6. ALTACE [Concomitant]
  7. ASPIRIN [Concomitant]
  8. PROTONIX [Concomitant]
  9. COREG [Concomitant]
  10. ALDACTONE [Concomitant]
  11. TYLENOL [Concomitant]
  12. MILK OF MAGNESIA TAB [Concomitant]

REACTIONS (1)
  - HYPOGLYCAEMIA [None]
